FAERS Safety Report 4491456-7 (Version None)
Quarter: 2004Q3

REPORT INFORMATION
  Report Type: 
  Country: None (occurrence: None)
  Receive Date: 20040921
  Receipt Date: 20030721
  Transmission Date: 20050211
  Serious: Yes (Death, Hospitalization)
  Sender: FDA-Public Use
  Company Number: 163-20785-03070536

PATIENT
  Age: 47 Year
  Sex: Female
  Weight: 106.1 kg

DRUGS (4)
  1. THALOMID [Suspect]
     Indication: METASTASES TO CENTRAL NERVOUS SYSTEM
     Dosage: 400 MG, DAILY, ORAL
     Route: 048
     Dates: start: 20030529, end: 20030613
  2. DEXAMETHASONE [Suspect]
     Indication: METASTASES TO CENTRAL NERVOUS SYSTEM
     Dates: end: 20030613
  3. TAMOXIFEN CITRATE [Concomitant]
  4. PEPCID [Concomitant]

REACTIONS (9)
  - AGGRESSION [None]
  - AGITATION [None]
  - CARDIAC ARREST [None]
  - CHEST PAIN [None]
  - CONVULSION [None]
  - DEATH [None]
  - DISEASE PROGRESSION [None]
  - DYSPNOEA [None]
  - PARANOIA [None]
